FAERS Safety Report 6698218-0 (Version None)
Quarter: 2010Q2

REPORT INFORMATION
  Report Type: 
  Country: None (occurrence: None)
  Receive Date: 20100427
  Receipt Date: 20100422
  Transmission Date: 20101027
  Serious: Yes (Hospitalization)
  Sender: FDA-Public Use
  Company Number: TW-BRISTOL-MYERS SQUIBB COMPANY-15055726

PATIENT
  Age: 30 Year
  Sex: Female
  Weight: 52 kg

DRUGS (5)
  1. DIDANOSINE [Suspect]
     Indication: HIV INFECTION
     Route: 065
  2. LAMIVUDINE [Suspect]
     Indication: HIV INFECTION
     Route: 065
  3. RALTEGRAVIR [Suspect]
     Indication: HIV INFECTION
     Dosage: 1 DF = 1 TABS
     Route: 048
     Dates: start: 20090722
  4. KIVEXA [Suspect]
     Indication: HIV INFECTION
     Dosage: 1DF:1TABS
     Route: 048
     Dates: start: 20100203
  5. ACETAMINOPHEN [Concomitant]
     Dates: start: 20100331

REACTIONS (5)
  - HEADACHE [None]
  - MITRAL VALVE INCOMPETENCE [None]
  - ORTHOSTATIC HYPOTENSION [None]
  - SYNCOPE [None]
  - TRICUSPID VALVE INCOMPETENCE [None]
